FAERS Safety Report 18232803 (Version 1)
Quarter: 2020Q3

REPORT INFORMATION
  Report Type: Report from Study
  Country: US (occurrence: US)
  Receive Date: 20200904
  Receipt Date: 20200904
  Transmission Date: 20201103
  Serious: Yes (Hospitalization)
  Sender: FDA-Public Use
  Company Number: US-PFIZER INC-2020330781

PATIENT
  Age: 69 Year
  Sex: Male

DRUGS (12)
  1. RITUXIMAB. [Suspect]
     Active Substance: RITUXIMAB
     Dosage: REGIMEN A: 375 MG/M2, CYCLIC (ON DAY 2 AND DAY 8 OF CYCLES 1 AND 3)
     Route: 042
  2. INOTUZUMAB OZOGAMICIN [Suspect]
     Active Substance: INOTUZUMAB OZOGAMICIN
     Indication: ACUTE LYMPHOCYTIC LEUKAEMIA
     Dosage: REGIMEN A: 0.3 MG/M2, CYCLIC (OVER 1 HOUR ON DAYS 2 AND 8 OF CYCLES 1 AND 3 (APPROXIMATE))
     Route: 042
     Dates: start: 20200430
  3. CYCLOPHOSPHAMIDE. [Suspect]
     Active Substance: CYCLOPHOSPHAMIDE
     Dosage: REGIMEN A: 150 MG/M2, CYCLIC (OVER 3 HOURS TWICE A DAY ON DAYS 1?3)
     Route: 042
  4. PEGFILGRASTIM [Suspect]
     Active Substance: PEGFILGRASTIM
     Dosage: REGIMEN A: 6 MG, CYCLIC (SUBQ(OR FILGRASTIM 5?10 MCG/KG DAILY) ON DAY 4 UNTIL RECOVERY OF GRANULOCYT
     Route: 058
  5. METHOTREXATE SODIUM. [Suspect]
     Active Substance: METHOTREXATE SODIUM
     Dosage: REGIMEN B: CYCLIC (50 MG/M2 OVER 2HRS ON DAY 1 THEN 200 MG/M2 CONTINUOUS INFUSION OVER 22 HOURS ON D
     Route: 042
  6. VINCRISTINE SULFATE. [Suspect]
     Active Substance: VINCRISTINE SULFATE
     Dosage: REGIMEN A: 2 MG, CYCLIC (DAY 1 AND DAY 8 (APPROXIMATE))
     Route: 042
  7. INOTUZUMAB OZOGAMICIN [Suspect]
     Active Substance: INOTUZUMAB OZOGAMICIN
     Dosage: REGIMEN B: 0.3 MG/M2, CYCLIC (ON DAYS 2 AND 8 OF CYCLES 2 AND 4 (APPROXIMATE))
     Route: 042
  8. ARA?C [Suspect]
     Active Substance: CYTARABINE
     Dosage: REGIMEN B: 500 MG/M2, CYCLIC (OVER 3 HOURS TWICE A DAY X 4 DOSES ON DAYS 2 AND 3)
     Route: 042
  9. MESNA. [Suspect]
     Active Substance: MESNA
     Dosage: REGIMEN A: 300 MG/M2, CYCLIC (DAILY OVER 24 HOURS FOR 3 DAYS ON DAYS 1?3)
     Route: 042
  10. RITUXIMAB. [Suspect]
     Active Substance: RITUXIMAB
     Dosage: REGIMEN B: 375 MG/M2, CYCLIC (ON DAY 2 AND 8 OF CYCLES 2 AND 4)
     Route: 042
  11. DEXAMETHASONE. [Suspect]
     Active Substance: DEXAMETHASONE
     Dosage: REGIMEN A: 20 MG, CYCLIC (DAILY FOR 4 DAYS ON DAYS 1?4 AND DAYS 11?14(APPROXIMATE))
     Route: 042
  12. PEGFILGRASTIM [Suspect]
     Active Substance: PEGFILGRASTIM
     Dosage: REGIMEN B: 6 MG, CYCLIC (SUBQ(OR FILGRASTIM 5?10 MCG/KG DAILY) ON DAY 4 UNTIL RECOVERY OF GRANULOCYT
     Route: 058

REACTIONS (1)
  - Hyponatraemia [Recovered/Resolved]

NARRATIVE: CASE EVENT DATE: 20200720
